FAERS Safety Report 5767318-1 (Version None)
Quarter: 2008Q2

REPORT INFORMATION
  Report Type: 
  Country: None (occurrence: None)
  Receive Date: 20080610
  Receipt Date: 20071213
  Transmission Date: 20081010
  Serious: Yes (Hospitalization)
  Sender: FDA-Public Use
  Company Number: NUBN20070007

PATIENT
  Age: 69 Year
  Sex: Female

DRUGS (1)
  1. NUBAIN [Suspect]
     Indication: PROCEDURAL PAIN
     Dosage: PRN, INJECTION
     Dates: start: 19960101, end: 19960101

REACTIONS (2)
  - NAUSEA [None]
  - VOMITING [None]
